FAERS Safety Report 10553398 (Version 1)
Quarter: 2014Q4

REPORT INFORMATION
  Report Type: Spontaneous
  Country: US (occurrence: US)
  Receive Date: 20141030
  Receipt Date: 20141030
  Transmission Date: 20150529
  Serious: No
  Sender: FDA-Public Use
  Company Number: US-009507513-1410USA013912

PATIENT
  Age: 27 Year
  Sex: Female
  Weight: 101.13 kg

DRUGS (1)
  1. IMPLANON [Suspect]
     Active Substance: ETONOGESTREL
     Dosage: LEFT UPPER ARM
     Route: 059
     Dates: start: 201101

REACTIONS (4)
  - Device difficult to use [Not Recovered/Not Resolved]
  - Medical device complication [Not Recovered/Not Resolved]
  - Scar [Unknown]
  - Incorrect drug administration duration [Unknown]

NARRATIVE: CASE EVENT DATE: 201101
